FAERS Safety Report 8810676 (Version 3)
Quarter: 2012Q4

REPORT INFORMATION
  Report Type: 
  Country: US (occurrence: US)
  Receive Date: 20120927
  Receipt Date: 20121024
  Transmission Date: 20130627
  Serious: Yes (Other)
  Sender: FDA-Public Use
  Company Number: US-CELGENEUS-163-21880-12083330

PATIENT
  Age: 52 Year
  Sex: Female
  Weight: 44.83 kg

DRUGS (27)
  1. REVLIMID [Suspect]
     Indication: MULTIPLE MYELOMA
     Dosage: 25 Milligram
     Route: 048
     Dates: start: 201001
  2. REVLIMID [Suspect]
     Dosage: 5 Milligram
     Route: 048
     Dates: start: 20110215
  3. REVLIMID [Suspect]
     Dosage: 25 Milligram
     Route: 048
     Dates: start: 20120705
  4. REVLIMID [Suspect]
     Dosage: 15 Milligram
     Route: 048
     Dates: start: 20120815, end: 20120822
  5. REVLIMID [Suspect]
     Dosage: 15 Milligram
     Route: 048
     Dates: start: 20120829
  6. ALLOPURINOL [Concomitant]
     Indication: PROPHYLAXIS
     Dosage: 300 Milligram
     Route: 065
  7. ASA [Concomitant]
     Indication: THROMBOEMBOLISM PROPHYLAXIS
     Dosage: 81 Milligram
     Route: 065
  8. DEXAMETHASONE [Concomitant]
     Indication: MULTIPLE MYELOMA
     Dosage: 40 Milligram
     Route: 065
     Dates: start: 20110818
  9. DEXAMETHASONE [Concomitant]
     Dosage: 4 Milligram
     Route: 048
     Dates: start: 20120705
  10. NAPROXEN [Concomitant]
     Indication: PAIN
     Dosage: 1000 Milligram
     Route: 048
     Dates: start: 20120822
  11. ZOMETA [Concomitant]
     Indication: MULTIPLE MYELOMA
     Dosage: 4 Milligram
     Route: 041
     Dates: start: 20100524
  12. ZOMETA [Concomitant]
     Dosage: 4 Milligram
     Route: 065
     Dates: start: 20111230
  13. PACKED RED BLOOD CELLS [Concomitant]
     Indication: MULTIPLE MYELOMA
     Dosage: 4 units
     Route: 041
     Dates: start: 20120630, end: 20120630
  14. PACKED RED BLOOD CELLS [Concomitant]
     Dosage: 2 units
     Route: 041
     Dates: start: 20120727, end: 20120727
  15. PACKED RED BLOOD CELLS [Concomitant]
     Dosage: 2 units
     Route: 041
     Dates: start: 20120829, end: 20120829
  16. VELCADE [Concomitant]
     Indication: MULTIPLE MYELOMA
     Route: 065
     Dates: start: 20110711
  17. VELCADE [Concomitant]
     Route: 058
     Dates: start: 20120501, end: 20120508
  18. NEUPOGEN [Concomitant]
     Indication: DRUG USE FOR UNKNOWN INDICATION
     Route: 050
     Dates: start: 20120815
  19. NEUPOGEN [Concomitant]
     Route: 050
     Dates: start: 20120829
  20. CRIZOTINIB [Concomitant]
     Indication: DRUG USE FOR UNKNOWN INDICATION
     Route: 065
     Dates: start: 20120910
  21. KYPROLIS [Concomitant]
     Indication: DRUG USE FOR UNKNOWN INDICATION
     Dosage: 60 Milligram
     Route: 041
     Dates: start: 20110818
  22. VICODIN [Concomitant]
     Indication: DRUG USE FOR UNKNOWN INDICATION
     Dosage: 5mg-500mg
     Route: 048
     Dates: start: 20110818
  23. PROCRIT [Concomitant]
     Indication: DRUG USE FOR UNKNOWN INDICATION
     Route: 065
  24. GARAMYCIN [Concomitant]
     Indication: DRUG USE FOR UNKNOWN INDICATION
     Dosage: .3 Percent
     Route: 065
  25. DECADRON [Concomitant]
     Indication: DRUG USE FOR UNKNOWN INDICATION
     Route: 065
     Dates: start: 201001
  26. DECADRON [Concomitant]
     Dosage: 2.8571 Milligram
     Route: 048
     Dates: start: 20120508
  27. DECADRON [Concomitant]
     Dosage: 5.7143 Milligram
     Route: 048
     Dates: start: 201210

REACTIONS (8)
  - Nephrotic syndrome [Unknown]
  - Haematuria [Unknown]
  - Haemoglobin decreased [Unknown]
  - Deep vein thrombosis [Unknown]
  - Plasmacytoma [Recovered/Resolved]
  - White blood cell count decreased [Recovered/Resolved]
  - Neutrophil count decreased [Recovered/Resolved]
  - Plasma cell myeloma [Unknown]
